FAERS Safety Report 9748652 (Version 1)
Quarter: 2013Q4

REPORT INFORMATION
  Report Type: Spontaneous
  Country: US (occurrence: US)
  Receive Date: 20131212
  Receipt Date: 20131212
  Transmission Date: 20140711
  Serious: Yes (Hospitalization)
  Sender: FDA-Public Use
  Company Number: US-ASTELLAS-2013US012871

PATIENT
  Age: 38 Year
  Sex: Male

DRUGS (2)
  1. ADENOSCAN [Suspect]
     Indication: SUPRAVENTRICULAR TACHYARRHYTHMIA
     Dosage: 6 MG, TOTAL DOSE
     Route: 042
  2. ADENOSCAN [Suspect]
     Dosage: 12 MG, TOTAL DOSE
     Route: 042

REACTIONS (2)
  - Off label use [Unknown]
  - Arteriospasm coronary [Recovered/Resolved]
